FAERS Safety Report 19884655 (Version 1)
Quarter: 2021Q3

REPORT INFORMATION
  Report Type: Spontaneous
  Country: US (occurrence: US)
  Receive Date: 20210923
  Receipt Date: 20210923
  Transmission Date: 20211014
  Serious: Yes (Hospitalization)
  Sender: FDA-Public Use
  Company Number: None

PATIENT
  Age: 65 Year
  Sex: Female

DRUGS (1)
  1. HUMIRA [Suspect]
     Active Substance: ADALIMUMAB
     Dosage: FREQUENCY: OTHER
     Route: 058
     Dates: start: 2006

REACTIONS (2)
  - Trigeminal neuralgia [None]
  - Acoustic neuroma [None]

NARRATIVE: CASE EVENT DATE: 20210923
